FAERS Safety Report 21700795 (Version 1)
Quarter: 2022Q4

REPORT INFORMATION
  Report Type: Spontaneous
  Country: US (occurrence: US)
  Receive Date: 20221208
  Receipt Date: 20221208
  Transmission Date: 20230113
  Serious: Yes (Other)
  Sender: FDA-Public Use
  Company Number: US-MYLANLABS-2022M1136429

PATIENT
  Age: 63 Year
  Sex: Male

DRUGS (8)
  1. LEVOTHYROXINE [Suspect]
     Active Substance: LEVOTHYROXINE
     Indication: Post procedural hypothyroidism
     Dosage: UNK
     Route: 065
  2. FLUOCINONIDE [Concomitant]
     Active Substance: FLUOCINONIDE
     Indication: Lichenoid keratosis
     Dosage: UNK
     Route: 061
  3. ASPIRIN [Concomitant]
     Active Substance: ASPIRIN
     Indication: Coronary artery disease
     Dosage: UNK
     Route: 065
  4. ATORVASTATIN [Concomitant]
     Active Substance: ATORVASTATIN
     Indication: Coronary artery disease
     Dosage: UNK
     Route: 065
  5. LISINOPRIL [Concomitant]
     Active Substance: LISINOPRIL
     Indication: Coronary artery disease
     Dosage: UNK
     Route: 065
  6. METOPROLOL [Concomitant]
     Active Substance: METOPROLOL
     Indication: Coronary artery disease
     Dosage: UNK
     Route: 065
  7. TRIAMCINOLONE [Concomitant]
     Active Substance: TRIAMCINOLONE
     Indication: Cutaneous amyloidosis
     Dosage: UNK; LEG WAS WRAPPED WITH AN UNNA BOOT WITH TRIAMCINOLONE
     Route: 065
  8. CLOBETASOL [Concomitant]
     Active Substance: CLOBETASOL
     Indication: Cutaneous amyloidosis
     Dosage: UNK
     Route: 061

REACTIONS (1)
  - Drug ineffective [Unknown]
